FAERS Safety Report 19055288 (Version 1)
Quarter: 2021Q1

REPORT INFORMATION
  Report Type: Spontaneous
  Country: US (occurrence: US)
  Receive Date: 20210325
  Receipt Date: 20210325
  Transmission Date: 20210420
  Serious: No
  Sender: FDA-Public Use
  Company Number: US-BAUSCH-BL-2021-009027

PATIENT
  Sex: Female

DRUGS (4)
  1. ADVANCED EYE RELIEF/ REDNESS MAXIMUM RELIEF [Suspect]
     Active Substance: HYPROMELLOSES\NAPHAZOLINE HYDROCHLORIDE
     Indication: EYE IRRITATION
  2. ADVANCED EYE RELIEF/ REDNESS MAXIMUM RELIEF [Suspect]
     Active Substance: HYPROMELLOSES\NAPHAZOLINE HYDROCHLORIDE
     Indication: OCULAR HYPERAEMIA
     Route: 047
     Dates: start: 202103
  3. LATANOPROST. [Suspect]
     Active Substance: LATANOPROST
     Indication: INTRAOCULAR PRESSURE INCREASED
     Dosage: IN THE EVENING?LAST MONTH FROM THE REPORT
     Route: 047
     Dates: start: 202102
  4. LEVOBUNOLOL HYDROCHLORIDE OPHTHALMIC SOLUTION USP 0.5% [Suspect]
     Active Substance: LEVOBUNOLOL HYDROCHLORIDE
     Indication: INTRAOCULAR PRESSURE INCREASED
     Dosage: IN THE MORNING?DISCONTINUED SINCE 1 WEEK AGO
     Route: 047
     Dates: start: 202102, end: 202103

REACTIONS (4)
  - Eye irritation [Not Recovered/Not Resolved]
  - Visual impairment [Not Recovered/Not Resolved]
  - Therapeutic product effect decreased [Unknown]
  - Ocular hyperaemia [Not Recovered/Not Resolved]

NARRATIVE: CASE EVENT DATE: 2021
